FAERS Safety Report 5072437-1 (Version None)
Quarter: 2006Q3

REPORT INFORMATION
  Report Type: 
  Country: None (occurrence: None)
  Receive Date: 20060801
  Receipt Date: 20060720
  Transmission Date: 20061208
  Serious: Yes (Other)
  Sender: FDA-Public Use
  Company Number: 2006088932

PATIENT
  Age: 55 Year
  Sex: Female

DRUGS (7)
  1. AROMASIN [Suspect]
     Dosage: 25 MG (25 MG, DAILY), ORAL
     Route: 048
     Dates: start: 20010101, end: 20060630
  2. LUVOX [Suspect]
     Dosage: 300 MG, ORAL
     Route: 048
  3. LIMAS (LITHIUM CARBONATE) [Concomitant]
  4. ZOLPIDEM TARTRATE [Concomitant]
  5. TEGRETOL [Concomitant]
  6. AKINETON [Concomitant]
  7. DIAZEPAM [Concomitant]

REACTIONS (4)
  - CONDITION AGGRAVATED [None]
  - CYSTITIS [None]
  - OBSESSIVE-COMPULSIVE DISORDER [None]
  - POLLAKIURIA [None]
